FAERS Safety Report 9515850 (Version 2)
Quarter: 2014Q1

REPORT INFORMATION
  Report Type: Spontaneous
  Country: US (occurrence: None)
  Receive Date: 20130305
  Receipt Date: 20140306
  Transmission Date: 20141002
  Serious: Yes (Other)
  Sender: FDA-Public Use
  Company Number: 163-21880-12102741

PATIENT
  Age: 69 Year
  Sex: Female
  Weight: 83.92 kg

DRUGS (18)
  1. REVLIMID [Suspect]
     Indication: PLASMA CELL MYELOMA
     Dosage: 10 MG, 21 IN 21 D, PO
     Route: 048
     Dates: start: 20100805
  2. CARVEDILOL [Concomitant]
  3. ISOSORBIDE MONONITRATE [Concomitant]
  4. GABAPENTIN [Concomitant]
  5. HYDRALAZINE HCL (HYDRALAZINE HYDROCHLORIDE) [Concomitant]
  6. DOXAZOSIN MESYLATE (DOXAZOSIN MESILATE) [Concomitant]
  7. ESOMEPRAZOLE MAGNESIUM [Concomitant]
  8. FUROSEMIDE [Concomitant]
  9. COUMADIN (WARFARIN SODIUM) [Concomitant]
  10. VICODIN [Concomitant]
  11. HYDROCHLOROTHIAZIDE [Concomitant]
  12. SPIRONOLACTONE [Concomitant]
  13. ATORVASTATIN CALCIUM [Concomitant]
  14. LANTUS (INSULIN GLARGINE) [Concomitant]
  15. OMEGA 3 (FISH OIL) [Concomitant]
  16. CIPRO (CIPROFLOXACIN) [Concomitant]
  17. LASIX (FUROSEMIDE) [Concomitant]
  18. CYCLOPHOSPHAMIDE [Concomitant]

REACTIONS (3)
  - Pancytopenia [None]
  - Cystitis klebsiella [None]
  - Oedema peripheral [None]
